FAERS Safety Report 11696801 (Version 2)
Quarter: 2017Q2

REPORT INFORMATION
  Report Type: Report from Study
  Country: PL (occurrence: PL)
  Receive Date: 20151104
  Receipt Date: 20170530
  Transmission Date: 20170829
  Serious: Yes (Hospitalization)
  Sender: FDA-Public Use
  Company Number: PHHO2015PL001038

PATIENT
  Age: 87 Year
  Sex: Male
  Weight: 76.7 kg

DRUGS (10)
  1. RLX030 [Suspect]
     Active Substance: SERELAXIN
     Indication: CARDIAC FAILURE ACUTE
     Dosage: 30 UG/KG, QD
     Route: 042
     Dates: start: 20141127, end: 20141128
  2. RAMIPRIL. [Concomitant]
     Active Substance: RAMIPRIL
     Indication: CARDIAC FAILURE
     Dosage: 2.5 MG, QD (1X2.5MG)
     Route: 048
     Dates: start: 20141127
  3. FUROSEMIDE. [Concomitant]
     Active Substance: FUROSEMIDE
     Indication: CARDIAC FAILURE
     Dosage: 40 MG, BID (40-40MG-0)
     Route: 048
     Dates: start: 20141205
  4. ACENOCUMAROL [Concomitant]
     Active Substance: ACENOCOUMAROL
     Indication: ATRIAL FIBRILLATION
     Dosage: 3 MG, QD (ACCORDING INR)
     Route: 065
  5. CARVEDILOL. [Concomitant]
     Active Substance: CARVEDILOL
     Indication: CARDIAC FAILURE
     Dosage: 12.5 MG, BID (2X12.5MG)
     Route: 048
     Dates: start: 20141208, end: 20141210
  6. CARVEDILOL. [Concomitant]
     Active Substance: CARVEDILOL
     Indication: ATRIAL FIBRILLATION
  7. ATORVASTATINE//ATORVASTATIN [Concomitant]
     Indication: PROPHYLAXIS
     Dosage: 10 MG, QD (1X10MG)
     Route: 048
     Dates: start: 20141208
  8. EUTHYROX [Concomitant]
     Active Substance: LEVOTHYROXINE SODIUM
     Indication: HYPOTHYROIDISM
     Dosage: 200 UG, QD (1X200UG)
     Route: 048
     Dates: start: 201405
  9. PANTOPRAZOL [Concomitant]
     Active Substance: PANTOPRAZOLE SODIUM
     Indication: GASTRITIS PROPHYLAXIS
     Dosage: 20 MG, QD (1X20MG)
     Route: 048
  10. DIGOXIN. [Suspect]
     Active Substance: DIGOXIN
     Indication: ATRIAL FIBRILLATION
     Dosage: 250 UG, QD (1X250UG)
     Route: 048
     Dates: start: 20141128, end: 20141210

REACTIONS (1)
  - Bradycardia [Recovered/Resolved]

NARRATIVE: CASE EVENT DATE: 20141210
